FAERS Safety Report 5952621-2 (Version None)
Quarter: 2008Q4

REPORT INFORMATION
  Report Type: 
  Country: None (occurrence: None)
  Receive Date: 20081028
  Receipt Date: 20080630
  Transmission Date: 20090506
  Serious: Yes (Other)
  Sender: FDA-Public Use
  Company Number: 08H-163-0314516-00

PATIENT
  Age: 25 Year
  Sex: Female

DRUGS (3)
  1. LIDOCAINE [Suspect]
     Indication: ARTHRALGIA
     Dosage: INJECTION
     Dates: start: 20080618, end: 20080618
  2. MARCAINE [Suspect]
     Indication: ARTHRALGIA
     Dosage: INJECTION
     Dates: start: 20080618, end: 20080618
  3. CELESTONE SOLUSPAN [Suspect]
     Indication: ARTHRALGIA
     Dosage: INJECTION
     Dates: start: 20080618, end: 20080618

REACTIONS (2)
  - DIZZINESS [None]
  - SYNCOPE [None]
